FAERS Safety Report 9258435 (Version 4)
Quarter: 2013Q2

REPORT INFORMATION
  Report Type: Spontaneous
  Country: TR (occurrence: TR)
  Receive Date: 20130426
  Receipt Date: 20130621
  Transmission Date: 20140414
  Serious: Yes (Life-Threatening, Hospitalization)
  Sender: FDA-Public Use
  Company Number: TR-VERTEX PHARMACEUTICALS INC.-2013-005431

PATIENT
  Age: 7 Decade
  Sex: Male

DRUGS (4)
  1. INCIVO [Suspect]
     Indication: CHRONIC HEPATITIS C
     Dosage: 750 MG, TID
     Route: 048
  2. PEGASYS [Suspect]
     Indication: CHRONIC HEPATITIS C
     Dosage: DOSAGE FORM: INJECTION
     Route: 058
  3. RIBASPHERE [Suspect]
     Indication: CHRONIC HEPATITIS C
     Dosage: 1200 MG, UNK
     Route: 048
  4. RIBASPHERE [Suspect]
     Dosage: 800 MG, UNK
     Route: 048

REACTIONS (4)
  - Cardiac arrest [Recovered/Resolved]
  - Cardiotoxicity [Unknown]
  - Ejection fraction decreased [Not Recovered/Not Resolved]
  - Haemoglobin decreased [Recovered/Resolved]
